FAERS Safety Report 5453747-2 (Version None)
Quarter: 2007Q3

REPORT INFORMATION
  Report Type: 
  Country: None (occurrence: None)
  Receive Date: 20070917
  Receipt Date: 20070911
  Transmission Date: 20080115
  Serious: Yes (Other)
  Sender: FDA-Public Use
  Company Number: FR-ELI_LILLY_AND_COMPANY-FR200601003810

PATIENT
  Age: 12 Year
  Sex: Male
  Weight: 54 kg

DRUGS (2)
  1. SOMATROPIN [Suspect]
     Indication: GROWTH HORMONE DEFICIENCY
     Dosage: 1.61 MG, DAILY (1/D)
     Route: 058
     Dates: start: 20010707, end: 20040501
  2. LEVOTHYROX [Concomitant]
     Indication: HYPOTHYROIDISM
     Dates: start: 20010515

REACTIONS (1)
  - MEDULLOBLASTOMA [None]
